FAERS Safety Report 6375127-8 (Version None)
Quarter: 2009Q3

REPORT INFORMATION
  Report Type: 
  Country: None (occurrence: None)
  Receive Date: 20090918
  Receipt Date: 20090911
  Transmission Date: 20100115
  Serious: Yes (Hospitalization)
  Sender: FDA-Public Use
  Company Number: 2009010349

PATIENT
  Age: 18 Year
  Sex: Female
  Weight: 72.5755 kg

DRUGS (1)
  1. NUVIGIL [Suspect]
     Indication: NARCOLEPSY
     Dosage: 150 MG (150 MG, 1 IN 1 D),ORAL
     Route: 048
     Dates: start: 20090721

REACTIONS (6)
  - BLISTER [None]
  - DYSPHAGIA [None]
  - HYPERSENSITIVITY [None]
  - LIP DISORDER [None]
  - OROPHARYNGEAL DISCOMFORT [None]
  - RASH [None]
